FAERS Safety Report 12355865 (Version 2)
Quarter: 2016Q2

REPORT INFORMATION
  Report Type: Report from Study
  Country: CA (occurrence: CA)
  Receive Date: 20160511
  Receipt Date: 20160602
  Transmission Date: 20160815
  Serious: Yes (Hospitalization, Other)
  Sender: FDA-Public Use
  Company Number: CA-JNJFOC-20160502352

PATIENT
  Age: 21 Year
  Sex: Male
  Weight: 53 kg

DRUGS (5)
  1. STELARA [Suspect]
     Active Substance: USTEKINUMAB
     Indication: CROHN^S DISEASE
     Route: 058
  2. PREDNISONE. [Concomitant]
     Active Substance: PREDNISONE
     Route: 048
  3. STELARA [Suspect]
     Active Substance: USTEKINUMAB
     Indication: CROHN^S DISEASE
     Route: 058
     Dates: start: 20151230
  4. PANTOLOC [Concomitant]
     Active Substance: PANTOPRAZOLE SODIUM
     Route: 048
  5. FER-IRON [Concomitant]
     Active Substance: FERROUS SULFATE
     Route: 048

REACTIONS (7)
  - Duodenal stenosis [Recovering/Resolving]
  - Product use issue [Unknown]
  - Clostridium difficile infection [Unknown]
  - Lower gastrointestinal haemorrhage [Recovering/Resolving]
  - Off label use [Unknown]
  - Upper gastrointestinal haemorrhage [Recovering/Resolving]
  - Procedural pain [Recovered/Resolved]

NARRATIVE: CASE EVENT DATE: 20151230
